FAERS Safety Report 19615265 (Version 3)
Quarter: 2021Q3

REPORT INFORMATION
  Report Type: Spontaneous
  Country: US (occurrence: US)
  Receive Date: 20210727
  Receipt Date: 20210819
  Transmission Date: 20211014
  Serious: No
  Sender: FDA-Public Use
  Company Number: US-PFIZER INC-2021215696

PATIENT
  Age: 54 Year
  Sex: Female

DRUGS (1)
  1. XELJANZ XR [Suspect]
     Active Substance: TOFACITINIB CITRATE
     Indication: RHEUMATOID ARTHRITIS
     Dosage: 11 MG, 1X/DAY
     Route: 048
     Dates: start: 20210119

REACTIONS (10)
  - Depressed mood [Recovered/Resolved]
  - Headache [Unknown]
  - Inflammation [Not Recovered/Not Resolved]
  - Illness [Unknown]
  - Pain [Not Recovered/Not Resolved]
  - Dizziness [Unknown]
  - Blood pressure systolic increased [Unknown]
  - Product dose omission in error [Recovered/Resolved]
  - Discouragement [Recovered/Resolved]
  - Nausea [Unknown]
